FAERS Safety Report 23538155 (Version 2)
Quarter: 2024Q1

REPORT INFORMATION
  Report Type: Spontaneous
  Country: JP (occurrence: JP)
  Receive Date: 20240219
  Receipt Date: 20240314
  Transmission Date: 20240410
  Serious: Yes (Other)
  Sender: FDA-Public Use
  Company Number: JP-TAKEDA-2024TUS015186

PATIENT
  Age: 37 Year
  Sex: Female

DRUGS (2)
  1. LIALDA [Suspect]
     Active Substance: MESALAMINE
     Indication: Colitis ulcerative
     Dosage: 4800 MILLIGRAM, QD
     Route: 048
  2. OMVOH [Suspect]
     Active Substance: MIRIKIZUMAB-MRKZ
     Indication: Product used for unknown indication
     Dosage: 200 MILLIGRAM, QD
     Route: 058
     Dates: start: 20231116, end: 20240111

REACTIONS (2)
  - Colitis ulcerative [Unknown]
  - Faecal calprotectin increased [Unknown]
